FAERS Safety Report 11491842 (Version 2)
Quarter: 2015Q4

REPORT INFORMATION
  Report Type: Spontaneous
  Country: US (occurrence: US)
  Receive Date: 20150910
  Receipt Date: 20151012
  Transmission Date: 20160304
  Serious: Yes (Hospitalization, Other)
  Sender: FDA-Public Use
  Company Number: US-APOTEX-2015AP012597

PATIENT
  Age: 17 Year
  Sex: Female

DRUGS (1)
  1. METFORMIN HYDROCHLORIDE. [Suspect]
     Active Substance: METFORMIN HYDROCHLORIDE
     Indication: SUICIDE ATTEMPT
     Dosage: 20 DF, UNK
     Route: 065

REACTIONS (5)
  - Suicide attempt [Unknown]
  - Lactic acidosis [Recovering/Resolving]
  - Intentional product misuse [Unknown]
  - Diarrhoea [Unknown]
  - Intentional overdose [Unknown]
